FAERS Safety Report 5249005-1 (Version None)
Quarter: 2007Q1

REPORT INFORMATION
  Report Type: 
  Country: None (occurrence: None)
  Receive Date: 20070228
  Receipt Date: 20060531
  Transmission Date: 20070707
  Serious: No
  Sender: FDA-Public Use
  Company Number: 2628-1

PATIENT
  Age: 53 Year
  Sex: Female
  Weight: 112.3 kg

DRUGS (4)
  1. VALTREX [Suspect]
     Dosage: 1000MG TWICE PER DAY
     Route: 048
     Dates: start: 20060511
  2. LIPITOR [Concomitant]
  3. ALLEGRA [Concomitant]
  4. ANTIHYPERTENSIVE [Concomitant]

REACTIONS (5)
  - EYE PRURITUS [None]
  - EYE SWELLING [None]
  - HYPERSENSITIVITY [None]
  - LACRIMATION INCREASED [None]
  - SWELLING FACE [None]
